FAERS Safety Report 8064004-2 (Version None)
Quarter: 2012Q1

REPORT INFORMATION
  Report Type: 
  Country: None (occurrence: None)
  Receive Date: 20120123
  Receipt Date: 20120116
  Transmission Date: 20120608
  Serious: Yes (Other)
  Sender: FDA-Public Use
  Company Number: HU-PFIZER INC-2012014336

PATIENT
  Age: 61 Year
  Sex: Female
  Weight: 68 kg

DRUGS (15)
  1. COVEREX AS [Concomitant]
     Dosage: UNK
     Dates: start: 20110101
  2. ATORIS [Concomitant]
     Dosage: UNK
     Dates: start: 20110101
  3. XANAX [Concomitant]
     Dosage: UNK
     Dates: start: 20110101
  4. ATROVENT [Concomitant]
     Dosage: UNK
     Dates: start: 20090101
  5. BERODUAL [Concomitant]
     Dosage: UNK
     Dates: start: 20110101
  6. ASPIRIN [Concomitant]
     Dosage: UNK
     Dates: start: 20090101
  7. TRIMETAZIDINE [Concomitant]
     Dosage: UNK
     Dates: start: 20090101
  8. NITROMINT [Concomitant]
     Dosage: UNK
     Dates: start: 20080101
  9. LYRICA [Suspect]
     Indication: NEURALGIA
     Dosage: 150 MG, 3X/DAY
     Dates: start: 20111101
  10. COVERCARD [Concomitant]
     Dosage: UNK
     Dates: start: 20110101
  11. INSUMAN BASAL [Concomitant]
     Dosage: UNK
     Dates: start: 20080101
  12. METFORMIN [Concomitant]
     Dosage: UNK
     Dates: start: 20060101
  13. INSUMAN RAPID [Concomitant]
     Dosage: UNK
     Dates: start: 20110101
  14. MINIPRESS [Concomitant]
     Dosage: UNK
     Dates: start: 20110101
  15. FUROSEMIDE [Concomitant]
     Dosage: UNK
     Dates: start: 20060101

REACTIONS (2)
  - DRUG INEFFECTIVE [None]
  - PAIN IN EXTREMITY [None]
